FAERS Safety Report 12309015 (Version 1)
Quarter: 2016Q2

REPORT INFORMATION
  Report Type: Spontaneous
  Country: US (occurrence: US)
  Receive Date: 20160427
  Receipt Date: 20160427
  Transmission Date: 20160815
  Serious: No
  Sender: FDA-Public Use
  Company Number: US-009507513-1604USA015510

PATIENT
  Age: 18 Year
  Sex: Female
  Weight: 55.78 kg

DRUGS (1)
  1. NEXPLANON [Suspect]
     Active Substance: ETONOGESTREL
     Indication: CONTRACEPTION
     Dosage: 68 MG/ONCE EVERY THREE YEARS, LEFT ARM
     Route: 059
     Dates: start: 20160406

REACTIONS (2)
  - Implant site swelling [Unknown]
  - Implant site pain [Unknown]

NARRATIVE: CASE EVENT DATE: 20160420
